FAERS Safety Report 24000478 (Version 1)
Quarter: 2024Q2

REPORT INFORMATION
  Report Type: Spontaneous
  Country: US (occurrence: None)
  Receive Date: 20240621
  Receipt Date: 20240621
  Transmission Date: 20240716
  Serious: No
  Sender: FDA-Public Use
  Company Number: None

PATIENT
  Age: 56 Year
  Sex: Female
  Weight: 120 kg

DRUGS (1)
  1. LENVIMA [Suspect]
     Active Substance: LENVATINIB
     Indication: Thyroid cancer
     Dosage: 24 MG DAILY ORAL
     Route: 048
     Dates: start: 20210601

REACTIONS (2)
  - Tooth loss [None]
  - Tooth fracture [None]

NARRATIVE: CASE EVENT DATE: 20240619
